FAERS Safety Report 12479674 (Version 1)
Quarter: 2016Q2

REPORT INFORMATION
  Report Type: Spontaneous
  Country: US (occurrence: US)
  Receive Date: 20160620
  Receipt Date: 20160620
  Transmission Date: 20160815
  Serious: No
  Sender: FDA-Public Use
  Company Number: US-PFIZER INC-2016304313

PATIENT
  Age: 61 Year

DRUGS (3)
  1. CODEINE [Suspect]
     Active Substance: CODEINE
  2. NEURONTIN [Suspect]
     Active Substance: GABAPENTIN
  3. BENADRYL [Suspect]
     Active Substance: DIPHENHYDRAMINE HYDROCHLORIDE

REACTIONS (1)
  - Drug hypersensitivity [Unknown]
